FAERS Safety Report 21365533 (Version 6)
Quarter: 2023Q4

REPORT INFORMATION
  Report Type: Spontaneous
  Country: US (occurrence: US)
  Receive Date: 20220922
  Receipt Date: 20231030
  Transmission Date: 20240110
  Serious: No
  Sender: FDA-Public Use
  Company Number: US-PHARMAESSENTIA CORPORATION-US-2022-PEC-000748

PATIENT
  Sex: Female

DRUGS (6)
  1. BESREMI [Suspect]
     Active Substance: ROPEGINTERFERON ALFA-2B-NJFT
     Indication: Polycythaemia vera
     Dosage: 100 MCG, Q2W
     Route: 058
     Dates: start: 20220801
  2. BESREMI [Suspect]
     Active Substance: ROPEGINTERFERON ALFA-2B-NJFT
     Dosage: UNK
     Route: 065
  3. BESREMI [Suspect]
     Active Substance: ROPEGINTERFERON ALFA-2B-NJFT
     Dosage: 150 MICROGRAM
     Route: 065
     Dates: start: 20221027
  4. BESREMI [Suspect]
     Active Substance: ROPEGINTERFERON ALFA-2B-NJFT
     Dosage: 150 MICROGRAM
     Route: 065
     Dates: start: 202211
  5. BESREMI [Suspect]
     Active Substance: ROPEGINTERFERON ALFA-2B-NJFT
     Dosage: 150 MCG
     Route: 058
     Dates: start: 20230105
  6. BESREMI [Suspect]
     Active Substance: ROPEGINTERFERON ALFA-2B-NJFT
     Dosage: 150 MCG
     Route: 058
     Dates: start: 20230119

REACTIONS (19)
  - Tremor [Unknown]
  - Basophil count decreased [Unknown]
  - Blood iron abnormal [Unknown]
  - Abdominal discomfort [Recovering/Resolving]
  - Influenza [Unknown]
  - Vomiting [Recovering/Resolving]
  - Therapy interrupted [Unknown]
  - Restless legs syndrome [Unknown]
  - Red blood cell count decreased [Not Recovered/Not Resolved]
  - Rash [Not Recovered/Not Resolved]
  - Headache [Unknown]
  - Influenza like illness [Recovered/Resolved]
  - Anaemia [Recovering/Resolving]
  - Injection site pain [Unknown]
  - Injection site irritation [Not Recovered/Not Resolved]
  - Diarrhoea [Recovering/Resolving]
  - Nausea [Recovering/Resolving]
  - Malaise [Recovering/Resolving]
  - Fatigue [Unknown]

NARRATIVE: CASE EVENT DATE: 20220801
